FAERS Safety Report 10904100 (Version 2)
Quarter: 2015Q2

REPORT INFORMATION
  Report Type: Spontaneous
  Country: JP (occurrence: JP)
  Receive Date: 20150311
  Receipt Date: 20150515
  Transmission Date: 20150821
  Serious: No
  Sender: FDA-Public Use
  Company Number: JP-BEH-2013037821

PATIENT
  Age: 17 Year
  Sex: Female

DRUGS (2)
  1. SANGLOPOR 2.5G [Suspect]
     Active Substance: HUMAN IMMUNOGLOBULIN G
     Indication: ENCEPHALITIS AUTOIMMUNE
  2. STEROID ANTIBACTERIALS [Concomitant]
     Active Substance: UNSPECIFIED INGREDIENT
     Indication: ENCEPHALITIS AUTOIMMUNE

REACTIONS (3)
  - Drug ineffective for unapproved indication [Recovering/Resolving]
  - Exposure during pregnancy [Unknown]
  - Aphasia [Recovering/Resolving]
